FAERS Safety Report 8474995-3 (Version None)
Quarter: 2012Q2

REPORT INFORMATION
  Report Type: 
  Country: None (occurrence: None)
  Receive Date: 20120628
  Receipt Date: 20120617
  Transmission Date: 20120825
  Serious: Yes (Hospitalization)
  Sender: FDA-Public Use
  Company Number: US-JNJFOC-20120608596

PATIENT
  Age: 87 Year
  Sex: Male

DRUGS (1)
  1. ZYTIGA [Suspect]
     Indication: PROSTATE CANCER
     Route: 048
     Dates: start: 20120101, end: 20120101

REACTIONS (5)
  - PYREXIA [None]
  - DYSPHAGIA [None]
  - CARDIAC DISORDER [None]
  - TACHYCARDIA [None]
  - INFECTION [None]
